FAERS Safety Report 8350146-0 (Version None)
Quarter: 2012Q2

REPORT INFORMATION
  Report Type: 
  Country: None (occurrence: None)
  Receive Date: 20120510
  Receipt Date: 20120504
  Transmission Date: 20120825
  Serious: Yes (Hospitalization)
  Sender: FDA-Public Use
  Company Number: CA-ABBOTT-12P-028-0932982-00

PATIENT
  Sex: Female

DRUGS (2)
  1. KALETRA [Suspect]
     Indication: ANTIRETROVIRAL THERAPY
     Dosage: 200MG/50MG. QD DOSE: 800MG/200MG
     Route: 048
  2. SUSTIVA [Concomitant]
     Indication: HIV INFECTION
     Route: 048

REACTIONS (4)
  - DEPRESSION [None]
  - FATIGUE [None]
  - TUBERCULIN TEST POSITIVE [None]
  - HALLUCINATION [None]
